FAERS Safety Report 5895257-4 (Version None)
Quarter: 2008Q3

REPORT INFORMATION
  Report Type: 
  Country: None (occurrence: None)
  Receive Date: 20080924
  Receipt Date: 20080918
  Transmission Date: 20090109
  Serious: Yes (Hospitalization)
  Sender: FDA-Public Use
  Company Number: B0538333A

PATIENT
  Age: 56 Year
  Sex: Female

DRUGS (5)
  1. RYTHMOL [Suspect]
     Dosage: 300MG TWICE PER DAY
     Route: 048
     Dates: start: 20080708, end: 20080806
  2. ALPRAZOLAM [Concomitant]
     Route: 048
  3. LYSINE ACETYLSALICYLATE [Concomitant]
     Route: 048
     Dates: end: 20080806
  4. ATENOLOL [Concomitant]
     Route: 048
  5. UNKNOWN [Concomitant]
     Route: 048

REACTIONS (9)
  - ASTHENIA [None]
  - BUNDLE BRANCH BLOCK RIGHT [None]
  - CYTOLYTIC HEPATITIS [None]
  - EJECTION FRACTION [None]
  - HYPERHIDROSIS [None]
  - HYPOAESTHESIA [None]
  - MITRAL VALVE INCOMPETENCE [None]
  - PALPITATIONS [None]
  - VENTRICULAR TACHYCARDIA [None]
